FAERS Safety Report 16180087 (Version 1)
Quarter: 2019Q2

REPORT INFORMATION
  Report Type: Spontaneous
  Country: FR (occurrence: FR)
  Receive Date: 20190410
  Receipt Date: 20190410
  Transmission Date: 20190711
  Serious: Yes (Death, Other)
  Sender: FDA-Public Use
  Company Number: FR-GLAXOSMITHKLINE-FR2019063507

PATIENT
  Age: 87 Year
  Sex: Female
  Weight: 43 kg

DRUGS (8)
  1. VENTOLINE [Suspect]
     Active Substance: ALBUTEROL
     Indication: ASTHMA
     Dosage: 1 TO 6 DF/DAY
     Route: 055
  2. BRICANYL [Suspect]
     Active Substance: TERBUTALINE SULFATE
     Indication: ASTHMA
     Dosage: 2 DF, QD
     Route: 055
     Dates: end: 20190317
  3. PANTOPRAZOLE [Suspect]
     Active Substance: PANTOPRAZOLE
     Indication: OESOPHAGITIS
     Dosage: 1 DF, QD
     Route: 048
     Dates: end: 20190317
  4. TARKA [Suspect]
     Active Substance: TRANDOLAPRIL\VERAPAMIL HYDROCHLORIDE
     Indication: HYPERTENSION
     Dosage: 1 DF, QD
     Route: 048
     Dates: start: 2016
  5. MONTELUKAST SODIUM. [Suspect]
     Active Substance: MONTELUKAST SODIUM
     Indication: ASTHMA
     Dosage: 10 MG, QD
     Route: 048
     Dates: end: 20190317
  6. BECOTIDE [Suspect]
     Active Substance: BECLOMETHASONE DIPROPIONATE
     Indication: ASTHMA
     Dosage: 2 DF, QD
     Route: 055
     Dates: start: 2016, end: 20190317
  7. COUMADIN [Suspect]
     Active Substance: WARFARIN SODIUM
     Indication: ATRIAL FIBRILLATION
     Dosage: 2 DF, QD
     Route: 048
     Dates: start: 2016, end: 201902
  8. LORAZEPAM. [Suspect]
     Active Substance: LORAZEPAM
     Indication: INSOMNIA
     Dosage: 1 MG, QD
     Route: 048
     Dates: start: 2016, end: 20190317

REACTIONS (2)
  - General physical health deterioration [Fatal]
  - Squamous cell carcinoma of the oral cavity [Fatal]

NARRATIVE: CASE EVENT DATE: 201902
